FAERS Safety Report 9790049 (Version 1)
Quarter: 2013Q4

REPORT INFORMATION
  Report Type: Spontaneous
  Country: US (occurrence: None)
  Receive Date: 20131230
  Receipt Date: 20131230
  Transmission Date: 20140711
  Serious: Yes (Hospitalization)
  Sender: FDA-Public Use
  Company Number: None

PATIENT
  Age: 50 Year
  Sex: Female
  Weight: 56.4 kg

DRUGS (1)
  1. PRINIVIL [Suspect]
     Indication: HYPERTENSION
     Dosage: 10/12 5MG TWICE DAILY ORAL
     Dates: end: 20120818

REACTIONS (5)
  - Respiratory failure [None]
  - Upper airway obstruction [None]
  - Angioedema [None]
  - Dyspnoea [None]
  - Stridor [None]
